FAERS Safety Report 9887672 (Version 1)
Quarter: 2013Q4

REPORT INFORMATION
  Report Type: Spontaneous
  Country: US (occurrence: None)
  Receive Date: 20131223
  Receipt Date: 20131223
  Transmission Date: 20140711
  Serious: No
  Sender: FDA-Public Use
  Company Number: 219781LEO

PATIENT
  Age: 69 Year
  Sex: Male

DRUGS (1)
  1. PICATO (0.015%, GEL) [Suspect]
     Indication: ACTINIC KERATOSIS
     Route: 061
     Dates: start: 20121126

REACTIONS (8)
  - Erythema [None]
  - Feeling hot [None]
  - Discomfort [None]
  - Abnormal sensation in eye [None]
  - Eye irritation [None]
  - Drug administration error [None]
  - Accidental exposure to product [None]
  - Pain [None]
